FAERS Safety Report 20009561 (Version 1)
Quarter: 2021Q4

REPORT INFORMATION
  Report Type: Spontaneous
  Country: CN (occurrence: CN)
  Receive Date: 20211029
  Receipt Date: 20211029
  Transmission Date: 20220303
  Serious: Yes (Other)
  Sender: FDA-Public Use
  Company Number: CN-ROCHE-2941290

PATIENT
  Age: 64 Year
  Sex: Male

DRUGS (5)
  1. TECENTRIQ [Suspect]
     Active Substance: ATEZOLIZUMAB
     Indication: Lung neoplasm malignant
     Route: 065
     Dates: start: 202007
  2. ETOPOSIDE [Concomitant]
     Active Substance: ETOPOSIDE
     Indication: Lung neoplasm malignant
     Dates: start: 202007
  3. CARBOPLATIN [Concomitant]
     Active Substance: CARBOPLATIN
     Indication: Lung neoplasm malignant
     Dates: start: 202007
  4. CYCLOPHOSPHAMIDE [Concomitant]
     Active Substance: CYCLOPHOSPHAMIDE
     Indication: Lung neoplasm malignant
     Dates: start: 202008, end: 202011
  5. EPIRUBICIN [Concomitant]
     Active Substance: EPIRUBICIN
     Indication: Lung neoplasm malignant
     Dates: start: 202008, end: 202011

REACTIONS (1)
  - Myelosuppression [Unknown]
